FAERS Safety Report 6993075-7 (Version None)
Quarter: 2010Q3

REPORT INFORMATION
  Report Type: 
  Country: None (occurrence: None)
  Receive Date: 20100917
  Receipt Date: 20100702
  Transmission Date: 20110219
  Serious: Yes (Hospitalization, Other)
  Sender: FDA-Public Use
  Company Number: US-ASTRAZENECA-2007UW03817

PATIENT
  Age: 490 Month
  Sex: Male
  Weight: 117.9 kg

DRUGS (26)
  1. SEROQUEL [Suspect]
     Indication: BIPOLAR DISORDER
     Route: 048
     Dates: start: 20010401, end: 20081101
  2. SEROQUEL [Suspect]
     Indication: SCHIZOPHRENIA
     Route: 048
     Dates: start: 20010401, end: 20081101
  3. SEROQUEL [Suspect]
     Indication: DEPRESSION
     Route: 048
     Dates: start: 20010401, end: 20081101
  4. SEROQUEL [Suspect]
     Indication: PSYCHOTIC DISORDER
     Route: 048
     Dates: start: 20010401, end: 20081101
  5. SEROQUEL [Suspect]
     Dosage: 200-600 MG
     Route: 048
     Dates: start: 20030601, end: 20070101
  6. SEROQUEL [Suspect]
     Dosage: 200-600 MG
     Route: 048
     Dates: start: 20030601, end: 20070101
  7. SEROQUEL [Suspect]
     Dosage: 200-600 MG
     Route: 048
     Dates: start: 20030601, end: 20070101
  8. SEROQUEL [Suspect]
     Dosage: 200-600 MG
     Route: 048
     Dates: start: 20030601, end: 20070101
  9. RISPERDAL [Suspect]
     Indication: BIPOLAR DISORDER
     Dates: start: 20010101
  10. RISPERDAL [Suspect]
     Indication: SCHIZOPHRENIA
     Dates: start: 20010101
  11. RISPERDAL [Suspect]
     Dosage: 1-3 MG
     Dates: start: 20040607, end: 20041005
  12. RISPERDAL [Suspect]
     Dosage: 1-3 MG
     Dates: start: 20040607, end: 20041005
  13. RISPERDAL [Suspect]
     Dosage: 1-3 MG
     Dates: start: 20100101
  14. RISPERDAL [Suspect]
     Dosage: 1-3 MG
     Dates: start: 20100101
  15. CLOZARIL [Concomitant]
     Dates: start: 20030301
  16. GEODON [Concomitant]
     Dates: start: 20040101
  17. HALDOL [Concomitant]
     Dates: start: 20030101
  18. NAVANE [Concomitant]
     Dates: start: 20030101
  19. THORAZINE [Concomitant]
  20. TRILAFON [Concomitant]
     Dates: start: 20040501
  21. ELAVIL [Concomitant]
  22. EFFEXOR [Concomitant]
     Dosage: 75-150 MG
     Dates: start: 20040101
  23. CARBAMAZEPINE [Concomitant]
     Dosage: 200 MG
     Dates: start: 20040101
  24. WELLBUTRIN [Concomitant]
     Dosage: 75 MG
     Dates: start: 20040101
  25. PROZAC [Concomitant]
  26. DOXEPIN HCL [Concomitant]

REACTIONS (9)
  - BLOOD CHOLESTEROL INCREASED [None]
  - BLOOD GLUCOSE INCREASED [None]
  - DIABETIC KETOACIDOSIS [None]
  - EXTRAPYRAMIDAL DISORDER [None]
  - HEPATITIS C [None]
  - HYPERLIPIDAEMIA [None]
  - NEUROLEPTIC MALIGNANT SYNDROME [None]
  - TARDIVE DYSKINESIA [None]
  - TYPE 2 DIABETES MELLITUS [None]
